FAERS Safety Report 13577084 (Version 1)
Quarter: 2017Q2

REPORT INFORMATION
  Report Type: Report from Study
  Country: JP (occurrence: JP)
  Receive Date: 20170524
  Receipt Date: 20170524
  Transmission Date: 20170830
  Serious: Yes (Death, Hospitalization, Other)
  Sender: FDA-Public Use
  Company Number: JP-002147023-PHHY2012JP011841

PATIENT
  Age: 67 Year
  Sex: Female

DRUGS (6)
  1. RASILEZ [Suspect]
     Active Substance: ALISKIREN
     Dosage: 150 MG, QD
     Route: 048
     Dates: start: 20100623, end: 20110120
  2. BAYASPIRIN [Concomitant]
     Active Substance: ASPIRIN
     Indication: PRODUCT USED FOR UNKNOWN INDICATION
     Dosage: 100 MG, UNK
     Route: 048
     Dates: start: 20100420, end: 20110123
  3. RASILEZ [Suspect]
     Active Substance: ALISKIREN
     Indication: HYPERTENSION
     Dosage: 150 MG, UNK
     Route: 048
     Dates: start: 20100623, end: 20110120
  4. MERISLON [Concomitant]
     Active Substance: BETAHISTINE MESILATE
     Indication: PRODUCT USED FOR UNKNOWN INDICATION
     Dosage: 18 MG, UNK
     Route: 048
     Dates: start: 20100420, end: 20100817
  5. ATELEC [Concomitant]
     Active Substance: CILNIDIPINE
     Indication: HYPERTENSION
     Dosage: 10 MG, UNK
     Route: 048
     Dates: start: 20101215, end: 20110120
  6. KAMAG G [Concomitant]
     Active Substance: MAGNESIUM OXIDE
     Indication: PRODUCT USED FOR UNKNOWN INDICATION
     Dosage: 2 G, UNK
     Route: 048
     Dates: start: 20100420, end: 20110123

REACTIONS (5)
  - Disseminated intravascular coagulation [Fatal]
  - Pyrexia [Fatal]
  - Hepatic failure [Fatal]
  - Blood pressure increased [Unknown]
  - Platelet count decreased [Fatal]

NARRATIVE: CASE EVENT DATE: 20100623
